FAERS Safety Report 16125933 (Version 1)
Quarter: 2019Q1

REPORT INFORMATION
  Report Type: Spontaneous
  Country: ES (occurrence: ES)
  Receive Date: 20190328
  Receipt Date: 20190328
  Transmission Date: 20190418
  Serious: Yes (Other)
  Sender: FDA-Public Use
  Company Number: ES-SA-2019SA080025

PATIENT
  Age: 71 Year
  Sex: Male

DRUGS (2)
  1. CABAZITAXEL [Suspect]
     Active Substance: CABAZITAXEL
     Dosage: 20 MG/M2, QCY
     Route: 065
     Dates: start: 20170825, end: 20170825
  2. CABAZITAXEL [Suspect]
     Active Substance: CABAZITAXEL
     Dosage: 20 MG/M2, QCY
     Route: 065
     Dates: start: 20180319, end: 20180319

REACTIONS (3)
  - Off label use [Unknown]
  - Embolism [Unknown]
  - Asthenia [Unknown]
